FAERS Safety Report 6863122-1 (Version None)
Quarter: 2010Q3

REPORT INFORMATION
  Report Type: 
  Country: None (occurrence: None)
  Receive Date: 20100721
  Receipt Date: 20100719
  Transmission Date: 20110219
  Serious: Yes (Other)
  Sender: FDA-Public Use
  Company Number: US-BRISTOL-MYERS SQUIBB COMPANY-14993307

PATIENT
  Age: 80 Year
  Sex: Female
  Weight: 57 kg

DRUGS (3)
  1. COUMADIN [Interacting]
     Indication: HEART VALVE REPLACEMENT
     Dosage: 1 DF= 4 MG ON MON,WED,FRI AND 3MG ON OTHER DAYS RECEIVED 1 MG AND 4 MG TABS
     Route: 048
     Dates: start: 19960101
  2. FORTEO [Interacting]
     Indication: OSTEOPOROTIC FRACTURE
  3. VITAMIN D [Suspect]

REACTIONS (5)
  - DRUG INTERACTION [None]
  - INTERNATIONAL NORMALISED RATIO ABNORMAL [None]
  - OSTEOPOROSIS [None]
  - PLATELET COUNT DECREASED [None]
  - SPINAL FRACTURE [None]
